FAERS Safety Report 4441052-2 (Version None)
Quarter: 2004Q3

REPORT INFORMATION
  Report Type: 
  Country: None (occurrence: None)
  Receive Date: 20040728
  Receipt Date: 20040331
  Transmission Date: 20050211
  Serious: No
  Sender: FDA-Public Use
  Company Number: USA040463790

PATIENT
  Age: 15 Year
  Sex: Male
  Weight: 57 kg

DRUGS (5)
  1. STRATTERA [Suspect]
     Dosage: 60 MG DAY
     Dates: start: 20040101
  2. SINGULAIR [Concomitant]
  3. PAXIL [Concomitant]
  4. COLACE (DOCUSATE SODIUM) [Concomitant]
  5. ADDERALL 10 [Concomitant]

REACTIONS (6)
  - DECREASED APPETITE [None]
  - DISTURBANCE IN SOCIAL BEHAVIOUR [None]
  - EDUCATIONAL PROBLEM [None]
  - EMOTIONAL DISORDER [None]
  - NEGATIVISM [None]
  - TEARFULNESS [None]
